FAERS Safety Report 9393077 (Version 2)
Quarter: 2013Q4

REPORT INFORMATION
  Report Type: Report from Study
  Country: JP (occurrence: JP)
  Receive Date: 20130710
  Receipt Date: 20131031
  Transmission Date: 20140711
  Serious: Yes (Death)
  Sender: FDA-Public Use
  Company Number: JP-SANOFI-AVENTIS-2013SA069485

PATIENT
  Sex: 0

DRUGS (3)
  1. CISPLATIN [Suspect]
     Indication: OESOPHAGEAL CARCINOMA
     Dosage: ADMINISTERED ON DAY 1
     Route: 065
  2. FLUOROURACIL [Suspect]
     Indication: OESOPHAGEAL CARCINOMA
     Dosage: ADMINISTERED ON DAY 1-5, IN EVERY 4 WEEK CYCLE
     Route: 065
  3. DOCETAXEL [Suspect]
     Indication: OESOPHAGEAL CARCINOMA
     Dosage: ADMINISTERED ON DAYS 1 AND 15, IN EVERY 4 WEEKS CYCLE
     Route: 065

REACTIONS (1)
  - Interstitial lung disease [Fatal]
